FAERS Safety Report 12954078 (Version 1)
Quarter: 2016Q4

REPORT INFORMATION
  Report Type: Spontaneous
  Country: US (occurrence: US)
  Receive Date: 20161118
  Receipt Date: 20161118
  Transmission Date: 20170207
  Serious: Yes (Other)
  Sender: FDA-Public Use
  Company Number: US-AMGEN-USASP2016160331

PATIENT
  Age: 90 Year
  Sex: Female

DRUGS (3)
  1. LORATADINE. [Concomitant]
     Active Substance: LORATADINE
     Indication: PRURITUS
  2. HYDRO [Concomitant]
  3. PROLIA [Suspect]
     Active Substance: DENOSUMAB
     Indication: OSTEOPOROSIS POSTMENOPAUSAL
     Dosage: UNK, Q6MO
     Route: 065
     Dates: start: 201603

REACTIONS (13)
  - Neck pain [Unknown]
  - Deafness unilateral [Not Recovered/Not Resolved]
  - Nail discolouration [Unknown]
  - Musculoskeletal stiffness [Unknown]
  - Ulcer [Unknown]
  - Pain [Unknown]
  - Arthralgia [Unknown]
  - Pain in jaw [Unknown]
  - Knee arthroplasty [Unknown]
  - Pain in extremity [Unknown]
  - Sensory loss [Unknown]
  - Inappropriate schedule of drug administration [Unknown]
  - Herpes zoster [Unknown]

NARRATIVE: CASE EVENT DATE: 2016
